FAERS Safety Report 5636185-9 (Version None)
Quarter: 2008Q1

REPORT INFORMATION
  Report Type: 
  Country: None (occurrence: None)
  Receive Date: 20080219
  Receipt Date: 20080206
  Transmission Date: 20080703
  Serious: Yes (Hospitalization)
  Sender: FDA-Public Use
  Company Number: 2008-00691

PATIENT
  Age: 58 Year
  Sex: Female

DRUGS (2)
  1. FIORICET [Suspect]
     Indication: OSTEOARTHRITIS
     Dosage: 650 MG, 1/WEEK X SEVERAL YEARS, ORAL
     Route: 048
  2. ALCOHOL(ETHANOL) [Suspect]
     Indication: ALCOHOLIC
     Dosage: 40 G, DAILY; ORAL
     Route: 048

REACTIONS (3)
  - HEPATOTOXICITY [None]
  - LIVER INJURY [None]
  - POTENTIATING DRUG INTERACTION [None]
